FAERS Safety Report 22095292 (Version 1)
Quarter: 2023Q1

REPORT INFORMATION
  Report Type: Spontaneous
  Country: US (occurrence: US)
  Receive Date: 20230314
  Receipt Date: 20230314
  Transmission Date: 20230418
  Serious: No
  Sender: FDA-Public Use
  Company Number: US-AMGEN-USASP2023042066

PATIENT
  Age: 46 Year

DRUGS (1)
  1. AVSOLA [Suspect]
     Active Substance: INFLIXIMAB-AXXQ
     Indication: Crohn^s disease
     Dosage: 5 MILLIGRAM/KILOGRAM, Q6WK
     Route: 042
     Dates: start: 20230216

REACTIONS (4)
  - Off label use [Unknown]
  - Peripheral swelling [Unknown]
  - Rash [Unknown]
  - Feeling abnormal [Unknown]

NARRATIVE: CASE EVENT DATE: 20230201
